FAERS Safety Report 9555568 (Version 1)
Quarter: 2013Q3

REPORT INFORMATION
  Report Type: Spontaneous
  Country: US (occurrence: None)
  Receive Date: 20130724
  Receipt Date: 20130724
  Transmission Date: 20140515
  Serious: Yes (Other)
  Sender: FDA-Public Use
  Company Number: PHEH2013US005710

PATIENT
  Sex: Female
  Weight: 56.7 kg

DRUGS (6)
  1. GILENYA (FINGOLIMOD) CAPSULE, 0.5MG [Suspect]
     Indication: MULTIPLE SCLEROSIS
     Route: 048
  2. LIPITOR (ATORVASTATIN CALCIUM) [Concomitant]
  3. OXYBUTYNIN (OXYBUTYNIN) [Concomitant]
  4. VITAMIN D (ERGOCALCIFEROL) [Concomitant]
  5. CALCIUM (CALCIUM) [Concomitant]
  6. NITROFURANTOIN [Concomitant]

REACTIONS (2)
  - Urinary tract infection [None]
  - Gait disturbance [None]
